FAERS Safety Report 6400029-8 (Version None)
Quarter: 2009Q4

REPORT INFORMATION
  Report Type: 
  Country: None (occurrence: None)
  Receive Date: 20091014
  Receipt Date: 20091006
  Transmission Date: 20100525
  Serious: Yes (Hospitalization)
  Sender: FDA-Public Use
  Company Number: A0785693A

PATIENT
  Age: 52 Year
  Sex: Male

DRUGS (1)
  1. AVANDAMET [Suspect]
     Indication: DIABETES MELLITUS
     Route: 048
     Dates: start: 20040401, end: 20051201

REACTIONS (9)
  - ASTHENIA [None]
  - CARDIAC DISORDER [None]
  - CHEST PAIN [None]
  - CORONARY ARTERY DISEASE [None]
  - EMOTIONAL DISTRESS [None]
  - FATIGUE [None]
  - MYOCARDIAL INFARCTION [None]
  - MYOCARDIAL ISCHAEMIA [None]
  - PAIN [None]
